FAERS Safety Report 24753844 (Version 2)
Quarter: 2025Q1

REPORT INFORMATION
  Report Type: Spontaneous
  Country: US (occurrence: US)
  Receive Date: 20241219
  Receipt Date: 20250102
  Transmission Date: 20250409
  Serious: Yes (Hospitalization)
  Sender: TEVA
  Company Number: US-TEVA-VS-3274537

PATIENT
  Age: 26 Year
  Sex: Female

DRUGS (3)
  1. TREPROSTINIL [Suspect]
     Active Substance: TREPROSTINIL
     Indication: Pulmonary arterial hypertension
     Route: 050
  2. LEVETIRACETAM [Suspect]
     Active Substance: LEVETIRACETAM
     Indication: Seizure
     Route: 065
  3. SILDENAFIL [Suspect]
     Active Substance: SILDENAFIL
     Indication: Pulmonary arterial hypertension
     Route: 065

REACTIONS (10)
  - Left-to-right cardiac shunt [Recovered/Resolved]
  - Maternal exposure during pregnancy [Unknown]
  - Ventricular dysfunction [Recovered/Resolved]
  - Pulmonary vascular disorder [Recovered/Resolved]
  - Shunt blood flow excessive [Recovered/Resolved]
  - Normal newborn [Unknown]
  - Tricuspid valve incompetence [Recovered/Resolved]
  - Hypoxia [Recovered/Resolved]
  - Ventricular hypokinesia [Recovered/Resolved]
  - Cardiac failure acute [Recovered/Resolved]
